FAERS Safety Report 10707885 (Version 1)
Quarter: 2015Q1

REPORT INFORMATION
  Report Type: Spontaneous
  Country: BR (occurrence: BR)
  Receive Date: 20150113
  Receipt Date: 20150113
  Transmission Date: 20150721
  Serious: Yes (Death, Other)
  Sender: FDA-Public Use
  Company Number: BR-PFIZER INC-2015008750

PATIENT
  Age: 74 Year
  Sex: Male

DRUGS (4)
  1. DIVELOL [Concomitant]
     Indication: CARDIAC DISORDER
     Dosage: 2 TABLETS, DAILY
     Dates: start: 2013
  2. NAPRIX [Concomitant]
     Active Substance: RAMIPRIL
     Indication: BLOOD PRESSURE ABNORMAL
     Dosage: 1 TABLET, DAILY
  3. LIPITOR [Suspect]
     Active Substance: ATORVASTATIN CALCIUM
     Indication: BLOOD CHOLESTEROL ABNORMAL
     Dosage: 20 MG, UNK
     Route: 048
  4. RIVOTRIL [Concomitant]
     Active Substance: CLONAZEPAM
     Indication: SLEEP DISORDER
     Dosage: 1 TABLET, DAILY

REACTIONS (2)
  - Infarction [Fatal]
  - Cardiomegaly [Fatal]
